FAERS Safety Report 10204129 (Version 1)
Quarter: 2014Q2

REPORT INFORMATION
  Report Type: Report from Study
  Country: FR (occurrence: FR)
  Receive Date: 20140529
  Receipt Date: 20140529
  Transmission Date: 20141212
  Serious: Yes (Hospitalization, Other)
  Sender: FDA-Public Use
  Company Number: FR-ASTELLAS-2014EU005964

PATIENT
  Age: 41 Year
  Sex: Female

DRUGS (6)
  1. TACROLIMUS [Suspect]
     Indication: PRODUCT USED FOR UNKNOWN INDICATION
     Dosage: UNK, UNKNOWN FREQ.
     Route: 065
     Dates: start: 20131105
  2. CELLCEPT                           /01275102/ [Concomitant]
     Indication: IMMUNOSUPPRESSION
     Dosage: UNK UNK, UNKNOWN FREQ.
     Route: 065
     Dates: start: 20131104
  3. TRIFLUCAN [Concomitant]
     Indication: FUNGAL INFECTION
     Route: 065
     Dates: start: 20131105, end: 20140205
  4. SODIUM BICARBONATE [Concomitant]
     Indication: ACIDOSIS
     Dosage: UNK UNK, UNKNOWN FREQ.
     Route: 065
     Dates: start: 20140109, end: 20140211
  5. INEXIUM                            /01479302/ [Concomitant]
     Indication: GASTROOESOPHAGEAL REFLUX DISEASE
     Dosage: UNK UNK, UNKNOWN FREQ.
     Route: 065
     Dates: start: 20140115
  6. AERIUS                             /01398501/ [Concomitant]
     Indication: PRODUCT USED FOR UNKNOWN INDICATION
     Dosage: UNK UNK, UNKNOWN FREQ.
     Route: 065
     Dates: start: 20140115, end: 20140220

REACTIONS (1)
  - Congenital cystic kidney disease [Recovered/Resolved]
